FAERS Safety Report 4668647-5 (Version None)
Quarter: 2005Q2

REPORT INFORMATION
  Report Type: 
  Country: None (occurrence: None)
  Receive Date: 20050523
  Receipt Date: 20040810
  Transmission Date: 20051028
  Serious: Yes (Death, Other)
  Sender: FDA-Public Use
  Company Number: US-SANOFI-SYNTHELABO-F01200402419

PATIENT
  Sex: Female
  Weight: 84.4 kg

DRUGS (14)
  1. OXALIPLATIN [Suspect]
     Indication: NON-SMALL CELL LUNG CANCER
     Route: 042
     Dates: start: 20040728, end: 20040728
  2. GEMCITABINE [Suspect]
     Route: 042
     Dates: start: 20040728, end: 20040728
  3. TYLENOL (CAPLET) [Concomitant]
     Dosage: UNK
     Route: 065
  4. MS CONTIN [Concomitant]
     Dosage: UNK
     Route: 065
  5. VICODIN [Concomitant]
     Dosage: UNK
     Route: 065
  6. NEXIUM [Concomitant]
     Dosage: UNK
     Route: 065
  7. GLUCOSAMINE [Concomitant]
     Dosage: UNK
     Route: 065
  8. ELAVIL [Concomitant]
     Dosage: UNK
     Route: 065
  9. FLOVENT [Concomitant]
     Dosage: UNK
     Route: 065
  10. FIBERCON [Concomitant]
     Dosage: UNK
     Route: 065
  11. ZITHROMAX [Concomitant]
     Dosage: UNK
     Route: 065
  12. KEFLEX [Concomitant]
     Dosage: UNK
     Route: 065
  13. IMODIUM [Concomitant]
     Dosage: UNK
     Route: 065
  14. EPOGEN [Concomitant]
     Dosage: UNK
     Route: 065

REACTIONS (7)
  - ANAEMIA [None]
  - BLOOD ALKALINE PHOSPHATASE INCREASED [None]
  - DEATH [None]
  - HYPOALBUMINAEMIA [None]
  - OEDEMA PERIPHERAL [None]
  - RED BLOOD CELL COUNT DECREASED [None]
  - THROMBOCYTOPENIA [None]
